FAERS Safety Report 6287309-4 (Version None)
Quarter: 2009Q3

REPORT INFORMATION
  Report Type: 
  Country: None (occurrence: None)
  Receive Date: 20090728
  Receipt Date: 20090717
  Transmission Date: 20100115
  Serious: Yes (Other)
  Sender: FDA-Public Use
  Company Number: US-PFIZER INC-2009244041

PATIENT
  Sex: Male

DRUGS (1)
  1. LYRICA [Suspect]
     Dosage: UNK

REACTIONS (5)
  - ACCIDENT [None]
  - FATIGUE [None]
  - HYPERHIDROSIS [None]
  - ROAD TRAFFIC ACCIDENT [None]
  - SLEEP DISORDER [None]
